FAERS Safety Report 15420365 (Version 1)
Quarter: 2018Q3

REPORT INFORMATION
  Report Type: Spontaneous
  Country: US (occurrence: US)
  Receive Date: 20180924
  Receipt Date: 20180924
  Transmission Date: 20181010
  Serious: Yes (Other)
  Sender: FDA-Public Use
  Company Number: US-SA-2018SA261036

PATIENT
  Age: 48 Year
  Sex: Female

DRUGS (3)
  1. NOVOLOG [Concomitant]
     Active Substance: INSULIN ASPART
  2. METFORMIN [Concomitant]
     Active Substance: METFORMIN HYDROCHLORIDE
  3. LANTUS [Suspect]
     Active Substance: INSULIN GLARGINE
     Dosage: 30 IU

REACTIONS (5)
  - Malaise [Unknown]
  - Rheumatoid arthritis [Unknown]
  - Insomnia [Unknown]
  - Device issue [Unknown]
  - Blood glucose increased [Unknown]
